FAERS Safety Report 6167689-0 (Version None)
Quarter: 2009Q2

REPORT INFORMATION
  Report Type: 
  Country: None (occurrence: None)
  Receive Date: 20090424
  Receipt Date: 20090416
  Transmission Date: 20091009
  Serious: Yes (Other)
  Sender: FDA-Public Use
  Company Number: ES-AMGEN-US343626

PATIENT
  Age: 60 Year
  Sex: Male

DRUGS (6)
  1. ENBREL [Suspect]
     Indication: ANKYLOSING SPONDYLITIS
     Dosage: 40 MG
     Route: 058
     Dates: start: 20041117, end: 20080124
  2. TRILEPTAL [Concomitant]
     Route: 048
     Dates: start: 20040101
  3. INACID [Concomitant]
     Route: 048
     Dates: start: 19940101, end: 20080124
  4. REBOXETINE [Concomitant]
     Route: 048
     Dates: start: 20040101
  5. ALLOPURINOL [Concomitant]
     Route: 048
     Dates: start: 20040101
  6. HIDROSALURETIL [Concomitant]
     Route: 048
     Dates: start: 20060101, end: 20081224

REACTIONS (2)
  - DIPLOPIA [None]
  - NEPHROTIC SYNDROME [None]
